FAERS Safety Report 6598866-2 (Version None)
Quarter: 2010Q1

REPORT INFORMATION
  Report Type: 
  Country: None (occurrence: None)
  Receive Date: 20100224
  Receipt Date: 20100215
  Transmission Date: 20100710
  Serious: Yes (Hospitalization)
  Sender: FDA-Public Use
  Company Number: US-ASTRAZENECA-2010SE05530

PATIENT
  Sex: Female

DRUGS (1)
  1. METOPROLOL SUCCINATE ER TABLETS [Suspect]
     Indication: HYPERTENSION
     Route: 048
     Dates: start: 20091229, end: 20100104

REACTIONS (6)
  - ADVERSE DRUG REACTION [None]
  - BLOOD PRESSURE DECREASED [None]
  - CHEST PAIN [None]
  - FEAR OF DISEASE [None]
  - PALLOR [None]
  - SYNCOPE [None]
